FAERS Safety Report 13921105 (Version 1)
Quarter: 2017Q3

REPORT INFORMATION
  Report Type: Spontaneous
  Country: US (occurrence: US)
  Receive Date: 20170830
  Receipt Date: 20170830
  Transmission Date: 20171127
  Serious: Yes (Hospitalization, Other)
  Sender: FDA-Public Use
  Company Number: US-ASTRAZENECA-2017SE87496

PATIENT
  Age: 889 Month
  Sex: Female

DRUGS (4)
  1. SYMBICORT [Suspect]
     Active Substance: BUDESONIDE\FORMOTEROL FUMARATE DIHYDRATE
     Indication: PRODUCT USED FOR UNKNOWN INDICATION
     Route: 055
  2. ADVAIR DISKUS [Suspect]
     Active Substance: FLUTICASONE PROPIONATE\SALMETEROL XINAFOATE
     Indication: MULTIPLE ALLERGIES
     Dosage: 1 PUFF,TWO TIMES A DAY
     Route: 055
     Dates: start: 1999
  3. ADVAIR DISKUS [Suspect]
     Active Substance: FLUTICASONE PROPIONATE\SALMETEROL XINAFOATE
     Indication: DYSPNOEA
     Dosage: 1 PUFF,TWO TIMES A DAY
     Route: 055
     Dates: start: 1999
  4. WATER PILL [Concomitant]
     Active Substance: UNSPECIFIED INGREDIENT

REACTIONS (9)
  - Atrial fibrillation [Recovered/Resolved]
  - Candida infection [Unknown]
  - Lung disorder [Recovered/Resolved]
  - Oral candidiasis [Recovered/Resolved]
  - Hypertension [Unknown]
  - Thrombosis [Recovering/Resolving]
  - Dyspnoea [Unknown]
  - Medication residue present [Unknown]
  - Vulvovaginal candidiasis [Recovered/Resolved]

NARRATIVE: CASE EVENT DATE: 201501
